FAERS Safety Report 6952997-3 (Version None)
Quarter: 2010Q3

REPORT INFORMATION
  Report Type: 
  Country: None (occurrence: None)
  Receive Date: 20100829
  Receipt Date: 20100519
  Transmission Date: 20110219
  Serious: No
  Sender: FDA-Public Use
  Company Number: US-ABBOTT-10P-163-0647055-00

PATIENT
  Sex: Female

DRUGS (6)
  1. NIASPAN [Suspect]
     Indication: BLOOD CHOLESTEROL INCREASED
     Dates: start: 20100512, end: 20100512
  2. NIASPAN [Suspect]
     Dates: start: 20100517, end: 20100518
  3. ASPIRIN [Concomitant]
     Indication: PROPHYLAXIS
     Dates: start: 20100512, end: 20100518
  4. ALLERGY SHOT [Concomitant]
     Indication: SEASONAL ALLERGY
     Dates: start: 20000101
  5. FELODIPINE [Concomitant]
     Indication: HYPERTENSION
  6. GLIMEPIRIDE [Concomitant]
     Indication: DIABETES MELLITUS

REACTIONS (6)
  - DYSPNOEA [None]
  - FATIGUE [None]
  - FEELING ABNORMAL [None]
  - PARAESTHESIA [None]
  - PRURITUS [None]
  - URTICARIA [None]
